FAERS Safety Report 24957558 (Version 1)
Quarter: 2025Q1

REPORT INFORMATION
  Report Type: Report from Study
  Country: US (occurrence: US)
  Receive Date: 20250212
  Receipt Date: 20250212
  Transmission Date: 20250409
  Serious: Yes (Hospitalization)
  Sender: ABBVIE
  Company Number: US-ABBVIE-6127208

PATIENT
  Age: 35 Year
  Sex: Male

DRUGS (2)
  1. HUMIRA [Suspect]
     Active Substance: ADALIMUMAB
     Indication: Ankylosing spondylitis
     Route: 058
     Dates: start: 2018, end: 2023
  2. ENBREL [Concomitant]
     Active Substance: ETANERCEPT
     Indication: Product used for unknown indication

REACTIONS (3)
  - Intestinal perforation [Unknown]
  - Drug ineffective [Not Recovered/Not Resolved]
  - Crohn^s disease [Unknown]

NARRATIVE: CASE EVENT DATE: 20241201
